FAERS Safety Report 4396249-7 (Version None)
Quarter: 2004Q2

REPORT INFORMATION
  Report Type: 
  Country: None (occurrence: None)
  Receive Date: 20040621
  Receipt Date: 20031121
  Transmission Date: 20050107
  Serious: Yes (Death)
  Sender: FDA-Public Use
  Company Number: USA-2003-0010973

PATIENT
  Age: 44 Year
  Sex: Female
  Weight: 83.9 kg

DRUGS (8)
  1. OXYCONTIN HYDROCHLORIDE (SIMILAR TO 20-553) (OXYCODONE HYDROCHLORIDE) [Suspect]
  2. HYDROCODONE BITARTRATE [Suspect]
  3. ACETAMINOPHEN [Suspect]
  4. DIPHENHYDRAMINE HCL [Suspect]
  5. BUPROPION (AMFEBUTAMONE) [Suspect]
  6. TEMAZEPAM [Suspect]
  7. VENLAFAXINE HCL [Suspect]
  8. CAFFEINE (CAFFEINE) [Suspect]

REACTIONS (2)
  - INTENTIONAL OVERDOSE [None]
  - MULTIPLE DRUG OVERDOSE [None]
